FAERS Safety Report 9799492 (Version 3)
Quarter: 2015Q1

REPORT INFORMATION
  Report Type: Spontaneous
  Country: US (occurrence: US)
  Receive Date: 20140106
  Receipt Date: 20150317
  Transmission Date: 20150721
  Serious: Yes (Hospitalization, Other)
  Sender: FDA-Public Use
  Company Number: US-MERCK-1401USA000969

PATIENT
  Sex: Female
  Weight: 62.13 kg

DRUGS (3)
  1. FOSAMAX [Suspect]
     Active Substance: ALENDRONATE SODIUM
     Dosage: 70 MG, QW
     Route: 048
     Dates: start: 200102, end: 2010
  2. VITAMINS (UNSPECIFIED) [Concomitant]
     Active Substance: VITAMINS
     Dosage: 1 DF, QD
     Dates: start: 1981
  3. FOSAMAX [Suspect]
     Active Substance: ALENDRONATE SODIUM
     Indication: OSTEOPOROSIS
     Dosage: 10 MG, QD
     Route: 048
     Dates: start: 19960930, end: 200101

REACTIONS (43)
  - Femur fracture [Recovering/Resolving]
  - Intramedullary rod insertion [Recovering/Resolving]
  - Blood cholesterol increased [Unknown]
  - Autoimmune disorder [Unknown]
  - Oral mucosal eruption [Unknown]
  - Renal failure [Unknown]
  - Joint injury [Unknown]
  - Depression [Unknown]
  - Insomnia [Unknown]
  - Joint dislocation [Unknown]
  - Muscle strain [Unknown]
  - Hysterectomy [Unknown]
  - Cerumen impaction [Unknown]
  - Neuritis cranial [Unknown]
  - Scoliosis [Not Recovered/Not Resolved]
  - Spinal laminectomy [Unknown]
  - Foot operation [Unknown]
  - Osteopenia [Unknown]
  - Spondylolisthesis [Unknown]
  - Facet joint syndrome [Unknown]
  - Synovial cyst [Unknown]
  - Muscle injury [Unknown]
  - Trigger finger [Unknown]
  - Fatigue [Unknown]
  - Atrial fibrillation [Recovered/Resolved]
  - Neck pain [Unknown]
  - Spinal column stenosis [Unknown]
  - Uterine dilation and curettage [Unknown]
  - Peripheral vascular disorder [Unknown]
  - Hypothyroidism [Unknown]
  - Fibrocystic breast disease [Unknown]
  - Cough [Unknown]
  - Tendon injury [Unknown]
  - Myositis [Unknown]
  - Osteoarthritis [Unknown]
  - Bronchitis [Unknown]
  - Cataract operation [Unknown]
  - Intraocular lens implant [Unknown]
  - Foot deformity [Unknown]
  - Carpal tunnel decompression [Unknown]
  - Sciatica [Unknown]
  - Constipation [Not Recovered/Not Resolved]
  - Back pain [Unknown]

NARRATIVE: CASE EVENT DATE: 199711
